FAERS Safety Report 15074965 (Version 1)
Quarter: 2018Q2

REPORT INFORMATION
  Report Type: Report from Study
  Country: US (occurrence: US)
  Receive Date: 20180627
  Receipt Date: 20180627
  Transmission Date: 20180711
  Serious: No
  Sender: FDA-Public Use
  Company Number: US-SAOL THERAPEUTICS-2017SAO01629

PATIENT
  Age: 60 Year
  Sex: Female

DRUGS (4)
  1. MORPHINE [Suspect]
     Active Substance: MORPHINE
     Dosage: 4.996 MG, \DAY
     Route: 037
  2. COMPOUNDED BACLOFEN [Suspect]
     Active Substance: BACLOFEN
     Dosage: 79.32 ?G, \DAY MAX
     Route: 037
  3. MORPHINE [Suspect]
     Active Substance: MORPHINE
     Dosage: 7.932 MG, \DAY MAX
     Route: 037
  4. COMPOUNDED BACLOFEN [Suspect]
     Active Substance: BACLOFEN
     Dosage: 49.96 ?G, \DAY
     Route: 037

REACTIONS (6)
  - Tinnitus [Recovered/Resolved]
  - Vomiting [Recovered/Resolved]
  - Headache [Recovered/Resolved]
  - Dizziness [Recovered/Resolved]
  - Catheter site pain [Recovered/Resolved]
  - Nausea [Recovered/Resolved]

NARRATIVE: CASE EVENT DATE: 20160706
